FAERS Safety Report 19840889 (Version 1)
Quarter: 2021Q3

REPORT INFORMATION
  Report Type: Spontaneous
  Country: US (occurrence: US)
  Receive Date: 20210916
  Receipt Date: 20210916
  Transmission Date: 20211014
  Serious: No
  Sender: FDA-Public Use
  Company Number: None

PATIENT
  Sex: Female
  Weight: 73.3 kg

DRUGS (12)
  1. VITAMIN D3 [Concomitant]
     Active Substance: CHOLECALCIFEROL
  2. ATORVASTATIN [Concomitant]
     Active Substance: ATORVASTATIN
  3. TRADJENTA [Concomitant]
     Active Substance: LINAGLIPTIN
  4. CALCIUM 600 + D [Concomitant]
     Active Substance: CALCIUM\VITAMIN D
  5. GLIPIZIDE. [Concomitant]
     Active Substance: GLIPIZIDE
  6. METOPROLOL. [Concomitant]
     Active Substance: METOPROLOL
  7. METFORMIN [Concomitant]
     Active Substance: METFORMIN HYDROCHLORIDE
  8. LASIX [Concomitant]
     Active Substance: FUROSEMIDE
  9. FERROUS SULFATE. [Concomitant]
     Active Substance: FERROUS SULFATE
  10. CAPECITABINE. [Suspect]
     Active Substance: CAPECITABINE
     Indication: COLON CANCER
     Dosage: ?          OTHER FREQUENCY:2 GM AM, 1.5 GM PM;?
     Route: 048
  11. CENTRUM SILVER [Concomitant]
     Active Substance: MINERALS\VITAMINS
  12. CORLANOR [Concomitant]
     Active Substance: IVABRADINE HYDROCHLORIDE

REACTIONS (2)
  - Renal impairment [None]
  - Ejection fraction decreased [None]
